FAERS Safety Report 7095267-8 (Version None)
Quarter: 2010Q4

REPORT INFORMATION
  Report Type: 
  Country: None (occurrence: None)
  Receive Date: 20101102
  Receipt Date: 20101018
  Transmission Date: 20110411
  Serious: Yes (Hospitalization)
  Sender: FDA-Public Use
  Company Number: 1000014606

PATIENT
  Age: 70 Year
  Sex: Female

DRUGS (9)
  1. CITALOPRAM HYDROBROMIDE [Suspect]
     Indication: DEPRESSION
     Dosage: 60 MG (60 MG,1 IN 1 D),ORAL
     Route: 048
     Dates: start: 20100324, end: 20100406
  2. CITALOPRAM HYDROBROMIDE [Suspect]
     Indication: DEPRESSION
     Dosage: 40 MG (40 MG,1 IN 1 D),ORAL
     Route: 048
     Dates: start: 20100407
  3. CITALOPRAM HYDROBROMIDE [Suspect]
     Indication: DEPRESSION
     Dosage: 20 MG (20 MG,1 IN 1 D),ORAL ; 40 MG (40 MG,1 IN 1 D),ORAL
     Route: 048
     Dates: start: 20091210, end: 20100318
  4. CITALOPRAM HYDROBROMIDE [Suspect]
     Indication: DEPRESSION
     Dosage: 20 MG (20 MG,1 IN 1 D),ORAL ; 40 MG (40 MG,1 IN 1 D),ORAL
     Route: 048
     Dates: start: 20100319, end: 20100323
  5. 4-(N-(S-GLUTATHIONYLACETYL) AMINO) PHENYLARSENOXIDE (GSAO) (4-(N-(S-GL [Suspect]
     Indication: OVARIAN CANCER
     Dosage: SEE IMAGE
     Route: 041
     Dates: start: 20100315, end: 20100326
  6. 4-(N-(S-GLUTATHIONYLACETYL) AMINO) PHENYLARSENOXIDE (GSAO) (4-(N-(S-GL [Suspect]
     Indication: OVARIAN CANCER
     Dosage: SEE IMAGE
     Route: 041
     Dates: start: 20100111
  7. 4-(N-(S-GLUTATHIONYLACETYL) AMINO) PHENYLARSENOXIDE (GSAO) (4-(N-(S-GL [Suspect]
     Indication: OVARIAN CANCER
     Dosage: SEE IMAGE
     Route: 041
     Dates: start: 20100201
  8. 4-(N-(S-GLUTATHIONYLACETYL) AMINO) PHENYLARSENOXIDE (GSAO) (4-(N-(S-GL [Suspect]
     Indication: OVARIAN CANCER
     Dosage: SEE IMAGE
     Route: 041
     Dates: start: 20100222
  9. CLOMIPRAMINE (CLOMIPRAMINE) (CLOMIPRAMINE) [Concomitant]

REACTIONS (23)
  - ABNORMAL BEHAVIOUR [None]
  - AGITATION [None]
  - ANXIETY [None]
  - BLOOD ALKALINE PHOSPHATASE INCREASED [None]
  - BLOOD LACTATE DEHYDROGENASE INCREASED [None]
  - BLOOD MAGNESIUM DECREASED [None]
  - BLOOD PHOSPHORUS DECREASED [None]
  - C-REACTIVE PROTEIN INCREASED [None]
  - CELLULITIS [None]
  - CONVULSION [None]
  - DEPRESSION [None]
  - HAEMOGLOBIN DECREASED [None]
  - LYMPHOCYTE COUNT DECREASED [None]
  - MALIGNANT NEOPLASM PROGRESSION [None]
  - NEUTROPHIL COUNT INCREASED [None]
  - OBSESSIVE-COMPULSIVE DISORDER [None]
  - OVARIAN CANCER [None]
  - PSYCHOTIC DISORDER [None]
  - PULMONARY EMBOLISM [None]
  - SUICIDE ATTEMPT [None]
  - UNRESPONSIVE TO STIMULI [None]
  - URINARY TRACT INFECTION [None]
  - VOMITING [None]
